FAERS Safety Report 4542314-0 (Version None)
Quarter: 2004Q4

REPORT INFORMATION
  Report Type: 
  Country: None (occurrence: None)
  Receive Date: 20041229
  Receipt Date: 20041213
  Transmission Date: 20050328
  Serious: Yes (Other)
  Sender: FDA-Public Use
  Company Number: 2004109919

PATIENT
  Sex: Female

DRUGS (2)
  1. LUBRIDERM DAILY MOISTURE WITH SPF 15 
(OXYBENZONE, ETHYLHEXYL P-METHOX [Suspect]
     Dosage: TOPICAL
     Route: 061
  2. SUNSCREEN (BUTYL METHOXYDIBENZOYLMETHANE, OCTINOXATE) [Suspect]
     Dosage: TOPICAL
     Route: 061

REACTIONS (1)
  - SKIN CANCER [None]
